FAERS Safety Report 20850768 (Version 2)
Quarter: 2022Q2

REPORT INFORMATION
  Report Type: Spontaneous
  Country: US (occurrence: US)
  Receive Date: 20220519
  Receipt Date: 20220613
  Transmission Date: 20220721
  Serious: Yes (Life-Threatening, Other)
  Sender: FDA-Public Use
  Company Number: US-PFIZER INC-202200712391

PATIENT
  Age: 50 Year
  Sex: Female
  Weight: 59.87 kg

DRUGS (3)
  1. PAXLOVID [Suspect]
     Active Substance: NIRMATRELVIR\RITONAVIR
     Indication: COVID-19 treatment
     Dosage: 3 DF
  2. MIRENA [Concomitant]
     Active Substance: LEVONORGESTREL
     Dosage: UNK
  3. VITAMIN C [Concomitant]
     Active Substance: ASCORBIC ACID
     Dosage: UNK

REACTIONS (2)
  - Anaphylactic shock [Recovered/Resolved]
  - Loss of consciousness [Unknown]
